FAERS Safety Report 8197049-2 (Version None)
Quarter: 2012Q1

REPORT INFORMATION
  Report Type: 
  Country: None (occurrence: None)
  Receive Date: 20120309
  Receipt Date: 20120302
  Transmission Date: 20120608
  Serious: Yes (Other)
  Sender: FDA-Public Use
  Company Number: BG-BAYER-2012-022847

PATIENT
  Sex: Female

DRUGS (1)
  1. ASPIRIN [Suspect]

REACTIONS (2)
  - RESPIRATORY ALKALOSIS [None]
  - RENAL IMPAIRMENT [None]
